FAERS Safety Report 5564609-4 (Version None)
Quarter: 2007Q4

REPORT INFORMATION
  Report Type: 
  Country: None (occurrence: None)
  Receive Date: 20071212
  Receipt Date: 20071203
  Transmission Date: 20080405
  Serious: Yes (Death, Life-Threatening)
  Sender: FDA-Public Use
  Company Number: 2007P1000720

PATIENT
  Age: 48 Year
  Sex: Female

DRUGS (2)
  1. BUSULFAN (BUSULFAN) [Suspect]
     Indication: STEM CELL TRANSPLANT
     Dosage: 30.8 ML; QD; IV
     Route: 042
     Dates: start: 20070511, end: 20070514
  2. FLUDARABINE PHOSPHATE [Concomitant]

REACTIONS (12)
  - ANOREXIA [None]
  - BLOOD BILIRUBIN INCREASED [None]
  - CELLULITIS [None]
  - DIARRHOEA [None]
  - GENERAL PHYSICAL HEALTH DETERIORATION [None]
  - HEPATOMEGALY [None]
  - MALAISE [None]
  - NAUSEA [None]
  - RESPIRATORY DISORDER [None]
  - STENOTROPHOMONAS SEPSIS [None]
  - STOMATITIS [None]
  - VOMITING [None]
